FAERS Safety Report 24826863 (Version 2)
Quarter: 2025Q1

REPORT INFORMATION
  Report Type: Spontaneous
  Country: US (occurrence: US)
  Receive Date: 20250109
  Receipt Date: 20250208
  Transmission Date: 20250409
  Serious: No
  Sender: ALEXION PHARMACEUTICALS
  Company Number: US-AstraZeneca-CH-00778898AP

PATIENT
  Age: 59 Year

DRUGS (1)
  1. BYDUREON BCISE [Suspect]
     Active Substance: EXENATIDE
     Route: 065

REACTIONS (5)
  - Thinking abnormal [Unknown]
  - Fear of eating [Unknown]
  - Product dose omission issue [Unknown]
  - Device issue [Unknown]
  - Device leakage [Unknown]
